FAERS Safety Report 12505362 (Version 2)
Quarter: 2016Q3

REPORT INFORMATION
  Report Type: Spontaneous
  Country: US (occurrence: US)
  Receive Date: 20160628
  Receipt Date: 20160725
  Transmission Date: 20161109
  Serious: No
  Sender: FDA-Public Use
  Company Number: US-PFIZER INC-2016317790

PATIENT
  Age: 46 Year
  Sex: Male
  Weight: 86 kg

DRUGS (3)
  1. VIAGRA [Suspect]
     Active Substance: SILDENAFIL CITRATE
     Dosage: SPIT ONE 100 MG PILL IN HALF
  2. VIAGRA [Suspect]
     Active Substance: SILDENAFIL CITRATE
     Indication: ERECTILE DYSFUNCTION
     Dosage: 100 MG, ONCE A DAY AS NEEDED
  3. VIAGRA [Suspect]
     Active Substance: SILDENAFIL CITRATE
     Dosage: TOOK A WHOLE 100 MG PILL AND ABOUT 3 HOURS AFTER THAT HE TOOK ANOTHER 100 MG PILL

REACTIONS (4)
  - Nausea [Unknown]
  - Intentional product use issue [Unknown]
  - Drug ineffective [Not Recovered/Not Resolved]
  - Heart rate increased [Unknown]

NARRATIVE: CASE EVENT DATE: 20160617
